FAERS Safety Report 7775932-7 (Version None)
Quarter: 2011Q3

REPORT INFORMATION
  Report Type: 
  Country: None (occurrence: None)
  Receive Date: 20110923
  Receipt Date: 20110915
  Transmission Date: 20111222
  Serious: Yes (Hospitalization, Other)
  Sender: FDA-Public Use
  Company Number: US-GENENTECH-324676

PATIENT
  Sex: Female

DRUGS (1)
  1. XOLAIR [Suspect]
     Indication: ASTHMA

REACTIONS (6)
  - WEIGHT DECREASED [None]
  - MALAISE [None]
  - OPERATIVE HAEMORRHAGE [None]
  - CARDIOVASCULAR DISORDER [None]
  - MESENTERIC OCCLUSION [None]
  - PARALYSIS [None]
